FAERS Safety Report 23521374 (Version 1)
Quarter: 2024Q1

REPORT INFORMATION
  Report Type: 
  Country: None (occurrence: None)
  Receive Date: 20240214
  Receipt Date: 20240214
  Transmission Date: 20240410
  Serious: No
  Sender: FDA-Public Use
  Company Number: JP-CHUGAI-2023018566

PATIENT
  Weight: 57 kg

DRUGS (17)
  1. BEVACIZUMAB [Suspect]
     Active Substance: BEVACIZUMAB
     Dates: start: 20230124, end: 20230329
  2. ATEZOLIZUMAB [Suspect]
     Active Substance: ATEZOLIZUMAB
     Dates: start: 20230124, end: 20230329
  3. RIFAXIMIN [Concomitant]
     Active Substance: RIFAXIMIN
     Dosage: 1200MG/DAY
     Dates: start: 20211116, end: 20230407
  4. SPIRONOLACTONE [Concomitant]
     Active Substance: SPIRONOLACTONE
     Dosage: 50MG/DAY
     Dates: start: 20211116, end: 20230407
  5. ECABET SODIUM [Concomitant]
     Active Substance: ECABET SODIUM
     Dosage: 3G/DAY
     Dates: start: 20211116, end: 20230407
  6. LIVACT [ISOLEUCINE;LEUCINE;VALINE] [Concomitant]
     Dosage: 12.45G/DAY
     Dates: start: 20211116, end: 20230407
  7. CALCIUM POLYSTYRENE SULFONATE [Concomitant]
     Active Substance: CALCIUM POLYSTYRENE SULFONATE
     Dosage: 25G/DAY
     Dates: start: 20211116, end: 20230407
  8. UNSPECIFIED INGREDIENT [Concomitant]
     Active Substance: UNSPECIFIED INGREDIENT
     Dosage: 150G/DAY
     Dates: start: 20211116, end: 20230407
  9. EPALRESTAT [Concomitant]
     Active Substance: EPALRESTAT
     Dosage: 150MG/DAY
     Dates: start: 20211116, end: 20230407
  10. MIYA-BM [Concomitant]
     Active Substance: CLOSTRIDIUM BUTYRICUM SPORES STRAIN M-55
     Dosage: 6 TABLET/DAY
     Dates: start: 20211116, end: 20230407
  11. SAMSCA [Concomitant]
     Active Substance: TOLVAPTAN
     Dosage: 7.5MG/DAY
     Dates: start: 20211116, end: 20230407
  12. VONOPRAZAN FUMARATE [Concomitant]
     Active Substance: VONOPRAZAN FUMARATE
     Dosage: 10MG/DAY
     Dates: start: 20211116, end: 20230407
  13. LOPERAMIDE [Concomitant]
     Active Substance: LOPERAMIDE
     Dosage: 1MG/DAY
     Dates: start: 20211116, end: 20230407
  14. MAGNESIUM OXIDE [Concomitant]
     Active Substance: MAGNESIUM OXIDE
     Dosage: 1500MG/DAY
     Dates: start: 20211116, end: 20230407
  15. APIDRA [Concomitant]
     Active Substance: INSULIN GLULISINE
     Dosage: SEVEN UNITS IN THE MORNING, SEVEN UNITS IN THE AFTERNOON, SEVEN UNITS IN THE EVENING, TID
     Dates: start: 20211116, end: 20230407
  16. LANTUS [Concomitant]
     Active Substance: INSULIN GLARGINE
     Dosage: 12 UNITS BEFORE BEDTIME, QD
     Dates: start: 20211116
  17. FUROSEMIDE [Concomitant]
     Active Substance: FUROSEMIDE
     Dates: start: 20211116, end: 20230407

REACTIONS (2)
  - Oesophageal varices haemorrhage [None]
  - Compression fracture [None]

NARRATIVE: CASE EVENT DATE: 20230331
